FAERS Safety Report 7974441-X (Version None)
Quarter: 2011Q4

REPORT INFORMATION
  Report Type: 
  Country: None (occurrence: None)
  Receive Date: 20111213
  Receipt Date: 20111130
  Transmission Date: 20120403
  Serious: Yes (Hospitalization)
  Sender: FDA-Public Use
  Company Number: DE-MYLANLABS-2011S1024842

PATIENT
  Age: 21 Year
  Sex: Male

DRUGS (1)
  1. BACLOFEN [Suspect]
     Indication: MUSCLE SPASTICITY
     Route: 037

REACTIONS (9)
  - PRURITUS [None]
  - DYSKINESIA [None]
  - LOSS OF CONSCIOUSNESS [None]
  - ACCIDENTAL OVERDOSE [None]
  - RESPIRATORY FAILURE [None]
  - HYPOTONIA [None]
  - BRADYCARDIA [None]
  - PARAESTHESIA [None]
  - CONVULSION [None]
